FAERS Safety Report 11135233 (Version 3)
Quarter: 2015Q2

REPORT INFORMATION
  Report Type: Spontaneous
  Country: US (occurrence: US)
  Receive Date: 20150525
  Receipt Date: 20150629
  Transmission Date: 20150821
  Serious: No
  Sender: FDA-Public Use
  Company Number: US-AMGEN-USASP2015049961

PATIENT
  Age: 54 Year
  Sex: Female

DRUGS (1)
  1. ENBREL [Suspect]
     Active Substance: ETANERCEPT
     Indication: RHEUMATOID ARTHRITIS
     Dosage: 50 MG, QWK
     Route: 065
     Dates: start: 20150514

REACTIONS (5)
  - Injection site pain [Recovered/Resolved]
  - Nervousness [Recovered/Resolved]
  - Injection site erythema [Not Recovered/Not Resolved]
  - Tremor [Recovered/Resolved]
  - Injection site injury [Recovered/Resolved]

NARRATIVE: CASE EVENT DATE: 201505
